FAERS Safety Report 5908091-3 (Version None)
Quarter: 2008Q4

REPORT INFORMATION
  Report Type: 
  Country: None (occurrence: None)
  Receive Date: 20081003
  Receipt Date: 20080922
  Transmission Date: 20090506
  Serious: Yes (Hospitalization)
  Sender: FDA-Public Use
  Company Number: FR-PFIZER INC-2008080887

PATIENT
  Sex: Female

DRUGS (16)
  1. ZYVOXID TABLET [Suspect]
     Indication: OSTEITIS
     Route: 048
     Dates: start: 20080722, end: 20080806
  2. CORDARONE [Suspect]
     Indication: ARRHYTHMIA
     Dosage: TEXT:1 DF; 1 DF-FREQ:WEEKLY: EVERY WEEK
     Route: 048
     Dates: end: 20080812
  3. LASIX [Suspect]
     Indication: HYPERTENSION
     Route: 048
     Dates: end: 20080812
  4. OGAST [Suspect]
     Indication: GASTRITIS
     Route: 048
     Dates: end: 20080805
  5. LOVENOX [Suspect]
     Indication: THROMBOSIS PROPHYLAXIS
     Route: 058
  6. FUCIDINE CAP [Suspect]
     Indication: OSTEITIS
     Route: 048
     Dates: start: 20080722, end: 20080806
  7. TARGOCID [Concomitant]
  8. FORLAX [Concomitant]
     Dates: end: 20080812
  9. DITROPAN [Concomitant]
     Dates: end: 20080812
  10. DIFFU K [Concomitant]
  11. DOMPERIDONE [Concomitant]
     Dates: end: 20080812
  12. MORPHINE SULFATE INJ [Concomitant]
     Route: 058
  13. GLUCOSE [Concomitant]
     Dates: end: 20080814
  14. PRIMPERAN TAB [Concomitant]
     Dates: end: 20080814
  15. FONZYLANE [Concomitant]
     Dates: end: 20080814
  16. LEVOTHYROX [Concomitant]

REACTIONS (1)
  - JAUNDICE CHOLESTATIC [None]
